FAERS Safety Report 5429971-1 (Version None)
Quarter: 2007Q3

REPORT INFORMATION
  Report Type: 
  Country: None (occurrence: None)
  Receive Date: 20070829
  Receipt Date: 20070808
  Transmission Date: 20080115
  Serious: No
  Sender: FDA-Public Use
  Company Number: US-BOEHRINGER INGELHEIM PHARMACEUTICALS, INC.-2007-BP-18876BP

PATIENT
  Age: 50 Year
  Sex: Female

DRUGS (6)
  1. MIRAPEX [Suspect]
     Indication: PARKINSON'S DISEASE
     Route: 048
  2. AZILECT [Concomitant]
  3. PROPRANOLOL [Concomitant]
  4. FUROSEMIDE [Concomitant]
  5. HYDROXYZINE [Concomitant]
  6. CLONAZEPAM [Concomitant]

REACTIONS (1)
  - OEDEMA PERIPHERAL [None]
